FAERS Safety Report 16420288 (Version 5)
Quarter: 2019Q3

REPORT INFORMATION
  Report Type: Spontaneous
  Country: US (occurrence: US)
  Receive Date: 20190612
  Receipt Date: 20190919
  Transmission Date: 20191004
  Serious: No
  Sender: FDA-Public Use
  Company Number: US-PFIZER INC-2018361964

PATIENT
  Age: 45 Year
  Sex: Female
  Weight: 62 kg

DRUGS (6)
  1. NICOTROL [Suspect]
     Active Substance: NICOTINE
     Dosage: UNK, AS NEEDED, (1 SPRAY INTO EACH NOSTRIL EVERY 1 HOUR AS NEEDED (SMOKING))
  2. NICOTROL [Suspect]
     Active Substance: NICOTINE
     Indication: SMOKING CESSATION THERAPY
     Dosage: UNK, AS NEEDED (USE ONE SPRAY INTO AFFECTED NOSTRIL EVERY HOUR AS NEEDED)
     Route: 045
     Dates: start: 1999
  3. NICOTROL [Suspect]
     Active Substance: NICOTINE
     Indication: NICOTINE DEPENDENCE
     Dosage: 10 MG, AS NEEDED (EVERY HOUR)
  4. NICOTROL [Suspect]
     Active Substance: NICOTINE
     Dosage: UNK
  5. NICOTROL [Suspect]
     Active Substance: NICOTINE
     Dosage: 1 DF, AS NEEDED (USE ONE SPRAY INTO AFFECTED NOSTRIL NOSTRILS EVERY HOUR AS NEEDED)
     Route: 045
  6. NICOTROL [Suspect]
     Active Substance: NICOTINE
     Dosage: USE ONE SPRAY INTO AFFECTED NOSTRILS EVERY HOUR AS NEEDED
     Route: 055
     Dates: start: 20180914

REACTIONS (3)
  - Intentional product misuse [Unknown]
  - Nephropathy [Unknown]
  - Migraine [Unknown]

NARRATIVE: CASE EVENT DATE: 1999
